FAERS Safety Report 10553510 (Version 1)
Quarter: 2014Q4

REPORT INFORMATION
  Report Type: Spontaneous
  Country: IT (occurrence: IT)
  Receive Date: 20141030
  Receipt Date: 20141030
  Transmission Date: 20150529
  Serious: Yes (Disabling, Other)
  Sender: FDA-Public Use
  Company Number: IT-AMGEN-ITASP2014083194

PATIENT
  Age: 57 Year
  Sex: Male

DRUGS (1)
  1. PROLIA [Suspect]
     Active Substance: DENOSUMAB
     Indication: PAGET-SCHROETTER SYNDROME
     Dosage: 60 MG, CYCLICAL
     Route: 030
     Dates: start: 20120117, end: 20140915

REACTIONS (2)
  - Incorrect route of drug administration [Unknown]
  - Osteonecrosis of jaw [Not Recovered/Not Resolved]

NARRATIVE: CASE EVENT DATE: 20140901
